FAERS Safety Report 8049989-2 (Version None)
Quarter: 2012Q1

REPORT INFORMATION
  Report Type: 
  Country: None (occurrence: None)
  Receive Date: 20120117
  Receipt Date: 20120112
  Transmission Date: 20120608
  Serious: Yes (Hospitalization, Other)
  Sender: FDA-Public Use
  Company Number: FR-PFIZER INC-2011305047

PATIENT
  Age: 87 Year
  Sex: Male

DRUGS (1)
  1. ARTHROTEC [Suspect]
     Indication: PAIN
     Dosage: 75 MG/0.2 MG

REACTIONS (1)
  - INTESTINAL OBSTRUCTION [None]
